FAERS Safety Report 4668127-7 (Version None)
Quarter: 2005Q2

REPORT INFORMATION
  Report Type: 
  Country: None (occurrence: None)
  Receive Date: 20050521
  Receipt Date: 20050111
  Transmission Date: 20051028
  Serious: Yes (Other)
  Sender: FDA-Public Use
  Company Number: PHEH2005US00852

PATIENT
  Age: 63 Year
  Sex: Female
  Weight: 102 kg

DRUGS (9)
  1. DITROPAN XL [Concomitant]
     Indication: HYPERTONIC BLADDER
     Dosage: UNK, QD
  2. RADIATION THERAPY [Concomitant]
  3. XANAX [Concomitant]
     Indication: ANXIETY
     Dosage: 0.25 MG, PRN
  4. AROMASIN [Concomitant]
     Dosage: 25 MG, QD
     Dates: start: 20020301
  5. PREVACID [Concomitant]
     Indication: GASTROOESOPHAGEAL REFLUX DISEASE
     Dosage: 30 MG, QD
  6. MOTRIN [Concomitant]
     Indication: BONE PAIN
     Dosage: 800 MG,  BID PRN
  7. CELEXA [Concomitant]
     Indication: DEPRESSION
     Dosage: 40 MG, QD
     Dates: start: 20021001
  8. CALCIUM W/VITAMIN D NOS [Concomitant]
     Indication: OSTEOPOROSIS
     Dosage: 600 MG, BID
  9. ZOMETA [Suspect]
     Indication: METASTASES TO BONE
     Dosage: 4 MG, Q 21-28 DAYS
     Dates: start: 20020318, end: 20041109

REACTIONS (25)
  - ABSCESS JAW [None]
  - ACTINOMYCOSIS [None]
  - AXILLARY MASS [None]
  - BLOOD GLUCOSE DECREASED [None]
  - BONE DEBRIDEMENT [None]
  - BONE DISORDER [None]
  - BONE INFECTION [None]
  - BREAST CANCER RECURRENT [None]
  - DEPRESSION [None]
  - ENTEROBACTER INFECTION [None]
  - FISTULA [None]
  - GINGIVAL BLEEDING [None]
  - GINGIVITIS ULCERATIVE [None]
  - HEADACHE [None]
  - IMPAIRED HEALING [None]
  - INFECTION [None]
  - LYMPHADENECTOMY [None]
  - NAUSEA [None]
  - ORAL SOFT TISSUE DISORDER [None]
  - OSTEOMYELITIS [None]
  - PEPTOSTREPTOCOCCUS INFECTION [None]
  - TOOTH DISORDER [None]
  - TOOTH EXTRACTION [None]
  - VERTIGO [None]
  - WEIGHT DECREASED [None]
